FAERS Safety Report 4747608-1 (Version None)
Quarter: 2005Q3

REPORT INFORMATION
  Report Type: 
  Country: None (occurrence: None)
  Receive Date: 20050818
  Receipt Date: 20041222
  Transmission Date: 20060218
  Serious: No
  Sender: FDA-Public Use
  Company Number: US-BRISTOL-MYERS SQUIBB COMPANY-12803821

PATIENT
  Age: 81 Year
  Sex: Female
  Weight: 61 kg

DRUGS (5)
  1. TEQUIN [Suspect]
     Indication: SINUSITIS
     Route: 048
     Dates: start: 20041001, end: 20040101
  2. TENORMIN [Concomitant]
  3. NEXIUM [Concomitant]
  4. PREVACID [Concomitant]
  5. FIORICET [Concomitant]
     Indication: MIGRAINE

REACTIONS (1)
  - CONDYLOMA ACUMINATUM [None]
